FAERS Safety Report 16914251 (Version 1)
Quarter: 2019Q4

REPORT INFORMATION
  Report Type: Spontaneous
  Country: US (occurrence: US)
  Receive Date: 20191014
  Receipt Date: 20191014
  Transmission Date: 20200122
  Serious: No
  Sender: FDA-Public Use
  Company Number: US-PFIZER INC-2019439153

PATIENT
  Sex: Female

DRUGS (1)
  1. CYTOTEC [Suspect]
     Active Substance: MISOPROSTOL
     Indication: GASTROOESOPHAGEAL REFLUX DISEASE
     Dosage: 200 UG, 1X/DAY (200MCG QD (ONE A DAY) OF CYTOTEC AT BEDTIME)

REACTIONS (5)
  - Drug ineffective for unapproved indication [Unknown]
  - Off label use [Unknown]
  - Abdominal pain upper [Unknown]
  - Diarrhoea [Unknown]
  - Flatulence [Unknown]
